FAERS Safety Report 5899323-9 (Version None)
Quarter: 2008Q3

REPORT INFORMATION
  Report Type: 
  Country: None (occurrence: None)
  Receive Date: 20080925
  Receipt Date: 20080922
  Transmission Date: 20090109
  Serious: Yes (Death)
  Sender: FDA-Public Use
  Company Number: US-GILEAD-2008-0018212

PATIENT
  Sex: Male
  Weight: 67.192 kg

DRUGS (10)
  1. LETAIRIS [Suspect]
     Indication: PULMONARY ARTERIAL HYPERTENSION
     Route: 048
     Dates: start: 20080121
  2. PROTONIX [Concomitant]
     Route: 048
  3. LASIX [Concomitant]
     Route: 048
  4. COUMADIN [Concomitant]
     Route: 048
  5. INSPRA [Concomitant]
     Route: 048
  6. ALLOPURINOL [Concomitant]
     Route: 048
  7. DIGOXIN [Concomitant]
     Route: 048
  8. COMBIVENT [Concomitant]
  9. VENTAVIS SOLUTION [Concomitant]
     Dosage: 10MCG/ML
  10. OXYGEN [Concomitant]

REACTIONS (1)
  - DEATH [None]
